FAERS Safety Report 19263913 (Version 2)
Quarter: 2021Q2

REPORT INFORMATION
  Report Type: Spontaneous
  Country: JP (occurrence: JP)
  Receive Date: 20210517
  Receipt Date: 20210521
  Transmission Date: 20210717
  Serious: Yes (Death, Other)
  Sender: FDA-Public Use
  Company Number: NVSJ2021JP007357

PATIENT
  Age: 64 Year
  Sex: Male

DRUGS (14)
  1. METHYLPREDNISOLONE. [Concomitant]
     Active Substance: METHYLPREDNISOLONE
     Indication: APLASTIC ANAEMIA
     Dosage: UNK
     Route: 065
  2. CYCLOPHOSPHAMIDE MONOHYDRATE [Concomitant]
     Active Substance: CYCLOPHOSPHAMIDE
     Dosage: 50 MG/KG
     Route: 065
  3. ANTITHYMOCYTE IMMUNOGLOBULIN (RABBIT) [Concomitant]
     Active Substance: LAPINE T-LYMPHOCYTE IMMUNE GLOBULIN
     Indication: APLASTIC ANAEMIA
     Dosage: UNK
     Route: 042
  4. METENOLONE ACETATE [Concomitant]
     Active Substance: METHENOLONE ACETATE
     Indication: APLASTIC ANAEMIA
     Dosage: UNK
     Route: 065
  5. TACROLIMUS MONOHYDRATE [Concomitant]
     Active Substance: TACROLIMUS
     Indication: APLASTIC ANAEMIA
     Dosage: 0.02 MG/KG, DAYS ?1 TO
     Route: 065
  6. REVOLADE TAB [Suspect]
     Active Substance: ELTROMBOPAG OLAMINE
     Indication: APLASTIC ANAEMIA
     Dosage: UNK
     Route: 048
  7. CYCLOPHOSPHAMIDE MONOHYDRATE [Concomitant]
     Active Substance: CYCLOPHOSPHAMIDE
     Indication: APLASTIC ANAEMIA
     Dosage: 14.5 MG/KG, DAY?6, ?5
     Route: 065
  8. FLUDARABINE PHOSPHATE. [Concomitant]
     Active Substance: FLUDARABINE PHOSPHATE
     Indication: APLASTIC ANAEMIA
     Dosage: 30 MG/M2, DAY ?6 TO ?2
     Route: 065
  9. PRIMOBOLAN [Concomitant]
     Active Substance: METHENOLONE
     Indication: APLASTIC ANAEMIA
     Dosage: UNK
     Route: 065
  10. FLUDARABINE PHOSPHATE. [Concomitant]
     Active Substance: FLUDARABINE PHOSPHATE
     Dosage: UNK
     Route: 065
  11. MYCOPHENOLATE MOFETIL. [Concomitant]
     Active Substance: MYCOPHENOLATE MOFETIL
     Indication: APLASTIC ANAEMIA
     Dosage: 15 MG/KG, DAYS ?1 TO
     Route: 065
  12. PREDNISOLONE. [Concomitant]
     Active Substance: PREDNISOLONE
     Indication: APLASTIC ANAEMIA
     Dosage: UNK
     Route: 065
  13. NEORAL [Suspect]
     Active Substance: CYCLOSPORINE
     Indication: APLASTIC ANAEMIA
     Dosage: UNK
     Route: 048
  14. CYCLOPHOSPHAMIDE MONOHYDRATE [Concomitant]
     Active Substance: CYCLOPHOSPHAMIDE
     Dosage: UNK
     Route: 065

REACTIONS (14)
  - White blood cell count decreased [Unknown]
  - Therapeutic product effect incomplete [Unknown]
  - Urinary bladder haemorrhage [Fatal]
  - Endotoxaemia [Fatal]
  - Serum ferritin increased [Unknown]
  - Post procedural haematuria [Fatal]
  - Enterococcal bacteraemia [Fatal]
  - Cellulitis [Unknown]
  - Post procedural infection [Unknown]
  - Product use in unapproved indication [Unknown]
  - Pyrexia [Unknown]
  - Haemophagocytic lymphohistiocytosis [Unknown]
  - Acute respiratory failure [Fatal]
  - Pneumonia [Unknown]
